FAERS Safety Report 23491421 (Version 1)
Quarter: 2024Q1

REPORT INFORMATION
  Report Type: Spontaneous
  Country: US (occurrence: None)
  Receive Date: 20240207
  Receipt Date: 20240207
  Transmission Date: 20240410
  Serious: No
  Sender: FDA-Public Use
  Company Number: 2024A024611

PATIENT
  Sex: Female

DRUGS (1)
  1. FASENRA [Suspect]
     Active Substance: BENRALIZUMAB
     Route: 058

REACTIONS (11)
  - Symptom recurrence [Unknown]
  - Feeling abnormal [Unknown]
  - Cough [Unknown]
  - Dysphonia [Unknown]
  - Malaise [Unknown]
  - Dysphonia [Unknown]
  - Nasopharyngitis [Unknown]
  - Bronchitis [Unknown]
  - Illness [Unknown]
  - COVID-19 [Unknown]
  - Drug effect less than expected [Unknown]
